FAERS Safety Report 17608120 (Version 2)
Quarter: 2020Q2

REPORT INFORMATION
  Report Type: Spontaneous
  Country: US (occurrence: US)
  Receive Date: 20200331
  Receipt Date: 20200430
  Transmission Date: 20200713
  Serious: Yes (Other)
  Sender: FDA-Public Use
  Company Number: US-LUNDBECK-DKLU3014713

PATIENT
  Age: 75 Year
  Sex: Male
  Weight: 100 kg

DRUGS (2)
  1. NORTHERA [Suspect]
     Active Substance: DROXIDOPA
     Indication: DIZZINESS
  2. NORTHERA [Suspect]
     Active Substance: DROXIDOPA
     Indication: AUTONOMIC NEUROPATHY
     Dosage: TITRATION COMPLETE
     Route: 065
     Dates: start: 20200115

REACTIONS (4)
  - Fall [Unknown]
  - Parkinson^s disease [Unknown]
  - Limb injury [Unknown]
  - Head injury [Unknown]

NARRATIVE: CASE EVENT DATE: 20200319
